FAERS Safety Report 5131540-8 (Version None)
Quarter: 2006Q4

REPORT INFORMATION
  Report Type: 
  Country: None (occurrence: None)
  Receive Date: 20061020
  Receipt Date: 20061005
  Transmission Date: 20070319
  Serious: Yes (Other)
  Sender: FDA-Public Use
  Company Number: GR-ROCHE-466380

PATIENT
  Age: 50 Year
  Sex: Female

DRUGS (3)
  1. CELLCEPT [Suspect]
     Indication: PEMPHIGUS
     Route: 048
  2. CORTISONE ACETATE [Concomitant]
     Indication: PEMPHIGUS
  3. IMMUNOSUPPRESSANTS [Concomitant]
     Indication: PEMPHIGUS

REACTIONS (2)
  - ABDOMINAL DISTENSION [None]
  - DYSPNOEA [None]
